FAERS Safety Report 6820348-0 (Version None)
Quarter: 2010Q3

REPORT INFORMATION
  Report Type: 
  Country: None (occurrence: None)
  Receive Date: 20100707
  Receipt Date: 20100623
  Transmission Date: 20110219
  Serious: Yes (Death, Hospitalization)
  Sender: FDA-Public Use
  Company Number: GB-TEVA-239388ISR

PATIENT
  Sex: Male

DRUGS (10)
  1. PREDNISOLONE [Suspect]
     Indication: PROSTATE CANCER METASTATIC
     Route: 048
     Dates: start: 20091124
  2. ABTRATERONE ACETATE/PLACEBO [Suspect]
     Indication: PROSTATE CANCER METASTATIC
     Route: 048
     Dates: start: 20091124, end: 20100318
  3. LEKOVIT CA [Concomitant]
     Route: 048
     Dates: start: 20050131
  4. ATENOLOL [Concomitant]
     Indication: HYPERTENSION
     Route: 048
     Dates: start: 20070706
  5. IRBESARTAN [Concomitant]
     Indication: HYPERTENSION
     Route: 048
     Dates: start: 20070713
  6. LANSOPRAZOLE [Concomitant]
     Indication: GASTROOESOPHAGEAL REFLUX DISEASE
     Route: 048
     Dates: start: 20090420
  7. DICLOFENAC SODIUM [Concomitant]
     Indication: DISEASE PROGRESSION
     Route: 048
     Dates: start: 20091007
  8. LOPERAMIDE [Concomitant]
     Indication: DIARRHOEA
     Route: 048
     Dates: start: 20100223
  9. CYCLIZINE [Concomitant]
     Indication: ANTIEMETIC SUPPORTIVE CARE
     Route: 030
     Dates: start: 20100318
  10. PROCHLORPERAZINE [Concomitant]
     Indication: NAUSEA
     Route: 030
     Dates: start: 20100318

REACTIONS (21)
  - ASPARTATE AMINOTRANSFERASE INCREASED [None]
  - BLOOD ALKALINE PHOSPHATASE INCREASED [None]
  - BLOOD PH DECREASED [None]
  - BLOOD PRESSURE DECREASED [None]
  - DEHYDRATION [None]
  - DIPLOPIA [None]
  - DYSPNOEA [None]
  - GASTROENTERITIS NOROVIRUS [None]
  - INTESTINAL ISCHAEMIA [None]
  - MALIGNANT NEOPLASM PROGRESSION [None]
  - OEDEMA PERIPHERAL [None]
  - OXYGEN SATURATION DECREASED [None]
  - PAIN IN EXTREMITY [None]
  - PCO2 DECREASED [None]
  - PERIPHERAL COLDNESS [None]
  - PO2 DECREASED [None]
  - PROSTATE CANCER METASTATIC [None]
  - PUPIL FIXED [None]
  - RENAL FAILURE ACUTE [None]
  - TACHYPNOEA [None]
  - UROSEPSIS [None]
